FAERS Safety Report 5159657-2 (Version None)
Quarter: 2006Q4

REPORT INFORMATION
  Report Type: 
  Country: None (occurrence: None)
  Receive Date: 20061129
  Receipt Date: 20061117
  Transmission Date: 20070319
  Serious: Yes (Hospitalization)
  Sender: FDA-Public Use
  Company Number: PHNU2006DE03849

PATIENT
  Age: 56 Year
  Sex: Male

DRUGS (2)
  1. SANDIMMUNE [Suspect]
     Indication: CORNEAL TRANSPLANT
     Route: 048
     Dates: start: 20040101
  2. ASCORBIC ACID [Suspect]
     Route: 048

REACTIONS (3)
  - CORNEAL GRAFT REJECTION [None]
  - DRUG INTERACTION [None]
  - DRUG LEVEL FLUCTUATING [None]
